FAERS Safety Report 24553881 (Version 1)
Quarter: 2024Q4

REPORT INFORMATION
  Report Type: Report from Study
  Country: US (occurrence: US)
  Receive Date: 20241028
  Receipt Date: 20241028
  Transmission Date: 20250115
  Serious: No
  Sender: ROCHE
  Company Number: US-ROCHE-10000078675

PATIENT
  Sex: Male
  Weight: 18.6 kg

DRUGS (2)
  1. NUTROPIN [Suspect]
     Active Substance: SOMATROPIN
     Indication: Hypopituitarism
     Route: 065
  2. NUTROPIN [Suspect]
     Active Substance: SOMATROPIN
     Indication: Chronic kidney disease

REACTIONS (2)
  - Off label use [Unknown]
  - No adverse event [Unknown]
